FAERS Safety Report 10077604 (Version 2)
Quarter: 2014Q2

REPORT INFORMATION
  Report Type: Spontaneous
  Country: US (occurrence: US)
  Receive Date: 20140414
  Receipt Date: 20140630
  Transmission Date: 20141212
  Serious: Yes (Other)
  Sender: FDA-Public Use
  Company Number: US-TEVA-471915USA

PATIENT
  Sex: Female

DRUGS (1)
  1. QNASL [Suspect]
     Route: 045

REACTIONS (1)
  - Nasal septum perforation [Unknown]
